FAERS Safety Report 5349568-1 (Version None)
Quarter: 2007Q2

REPORT INFORMATION
  Report Type: 
  Country: None (occurrence: None)
  Receive Date: 20070508
  Receipt Date: 20060511
  Transmission Date: 20071010
  Serious: Yes (Hospitalization)
  Sender: FDA-Public Use
  Company Number: 447887

PATIENT
  Age: 12 Year
  Sex: Female

DRUGS (5)
  1. NAPROSYN [Suspect]
     Indication: DRUG USE FOR UNKNOWN INDICATION
     Dosage: 375 MG 3 PER DAY
     Dates: start: 20020615
  2. TRACLEER [Suspect]
     Indication: PULMONARY HYPERTENSION
     Dosage: 62.5 MG 2 PER DAY ORAL
     Route: 048
     Dates: start: 20041108
  3. LASIX [Concomitant]
  4. ENALAPRIL (ENALAPRIL) [Concomitant]
  5. DIGOXIN [Concomitant]

REACTIONS (3)
  - DUODENAL ULCER [None]
  - GASTRIC ULCER [None]
  - GASTROINTESTINAL HAEMORRHAGE [None]
